FAERS Safety Report 15524713 (Version 3)
Quarter: 2018Q4

REPORT INFORMATION
  Report Type: Spontaneous
  Country: US (occurrence: US)
  Receive Date: 20181018
  Receipt Date: 20181023
  Transmission Date: 20190205
  Serious: No
  Sender: FDA-Public Use
  Company Number: US-PFIZER INC-2018418613

PATIENT
  Age: 65 Year
  Sex: Male

DRUGS (1)
  1. LEVOXYL [Suspect]
     Active Substance: LEVOTHYROXINE SODIUM
     Dosage: 88 UG, UNK

REACTIONS (4)
  - Palpitations [Unknown]
  - Blood thyroid stimulating hormone decreased [Unknown]
  - Euphoric mood [Unknown]
  - Product complaint [Unknown]

NARRATIVE: CASE EVENT DATE: 2018
